FAERS Safety Report 18218849 (Version 1)
Quarter: 2020Q3

REPORT INFORMATION
  Report Type: Spontaneous
  Country: GB (occurrence: GB)
  Receive Date: 20200901
  Receipt Date: 20200901
  Transmission Date: 20201103
  Serious: Yes (Hospitalization)
  Sender: FDA-Public Use
  Company Number: GB-VERTEX PHARMACEUTICALS-2020-017440

PATIENT
  Sex: Female

DRUGS (1)
  1. ORKAMBI [Suspect]
     Active Substance: IVACAFTOR\LUMACAFTOR
     Indication: CYSTIC FIBROSIS
     Dosage: 150/ 188 MG, BID
     Route: 048
     Dates: start: 2020

REACTIONS (2)
  - Cystic fibrosis respiratory infection suppression [Unknown]
  - Tonsillitis [Unknown]

NARRATIVE: CASE EVENT DATE: 2020
